FAERS Safety Report 5797933-0 (Version None)
Quarter: 2008Q3

REPORT INFORMATION
  Report Type: 
  Country: None (occurrence: None)
  Receive Date: 20080702
  Receipt Date: 20080618
  Transmission Date: 20090109
  Serious: Yes (Other)
  Sender: FDA-Public Use
  Company Number: DE-ELI_LILLY_AND_COMPANY-DE200806004528

PATIENT
  Sex: Female

DRUGS (7)
  1. FORTEO [Suspect]
     Indication: OSTEOPOROSIS
     Dosage: 20 UG, UNKNOWN
     Route: 058
     Dates: start: 20041016, end: 20051119
  2. ZOLPIDEM [Concomitant]
     Dosage: UNK, UNKNOWN
     Route: 065
  3. FORADIL [Concomitant]
     Dosage: UNK, UNKNOWN
     Route: 065
  4. CARMEN [Concomitant]
     Dosage: UNK, UNKNOWN
     Route: 065
  5. KETOFEX [Concomitant]
     Dosage: UNK, UNKNOWN
     Route: 065
  6. ISMN [Concomitant]
     Dosage: UNK, UNKNOWN
     Route: 065
  7. RAMIPRIL [Concomitant]
     Dosage: UNK, UNKNOWN
     Route: 065

REACTIONS (1)
  - MALIGNANT URINARY TRACT NEOPLASM [None]
